FAERS Safety Report 23440366 (Version 1)
Quarter: 2024Q1

REPORT INFORMATION
  Report Type: Spontaneous
  Country: TW (occurrence: TW)
  Receive Date: 20240124
  Receipt Date: 20240124
  Transmission Date: 20240410
  Serious: Yes (Other)
  Sender: FDA-Public Use
  Company Number: TW-JNJFOC-20240148578

PATIENT

DRUGS (2)
  1. NICORETTE [Suspect]
     Active Substance: NICOTINE
     Indication: Smoking cessation therapy
     Dosage: 15 DF (USE 15 GUMS FOR A DAY AND A HALF)
     Route: 065
     Dates: start: 202307, end: 202401
  2. NICORETTE [Suspect]
     Active Substance: NICOTINE
     Dosage: 12 DF
     Route: 065
     Dates: start: 20240105, end: 20240116

REACTIONS (7)
  - Muscular weakness [Recovered/Resolved]
  - Cold sweat [Recovered/Resolved]
  - Hypotension [Recovered/Resolved]
  - Discomfort [Recovered/Resolved]
  - Withdrawal syndrome [Recovered/Resolved]
  - Incorrect product administration duration [Not Recovered/Not Resolved]
  - Nicotine dependence [Not Recovered/Not Resolved]

NARRATIVE: CASE EVENT DATE: 20230701
